FAERS Safety Report 5763348-4 (Version None)
Quarter: 2008Q2

REPORT INFORMATION
  Report Type: 
  Country: None (occurrence: None)
  Receive Date: 20080609
  Receipt Date: 20080527
  Transmission Date: 20081010
  Serious: Yes (Other)
  Sender: FDA-Public Use
  Company Number: PL-GENENTECH-261857

PATIENT

DRUGS (2)
  1. MABTHERA [Suspect]
     Indication: B-CELL LYMPHOMA
     Dosage: 250 MG/M2, UNK
  2. IBRITUMOMAB TIUXETAN [Suspect]
     Indication: B-CELL LYMPHOMA

REACTIONS (1)
  - MYELODYSPLASTIC SYNDROME [None]
